FAERS Safety Report 7434489-0 (Version None)
Quarter: 2011Q2

REPORT INFORMATION
  Report Type: 
  Country: None (occurrence: None)
  Receive Date: 20110420
  Receipt Date: 20110420
  Transmission Date: 20111010
  Serious: Yes (Death)
  Sender: FDA-Public Use
  Company Number: None

PATIENT
  Sex: Male
  Weight: 65.318 kg

DRUGS (2)
  1. DARUNAVIR 400 MG TIBOTEC [Suspect]
     Dosage: 800 MG DAILY PO
     Route: 048
     Dates: start: 20110126, end: 20110228
  2. DARUNAVIR 600 MG TIBOTEC [Suspect]
     Indication: ACQUIRED IMMUNODEFICIENCY SYNDROME
     Dosage: 600 MG BID PO
     Route: 048
     Dates: start: 20110114, end: 20110125

REACTIONS (23)
  - LACTIC ACIDOSIS [None]
  - RENAL FAILURE ACUTE [None]
  - SEPTIC SHOCK [None]
  - HYPOTHERMIA [None]
  - ORAL HERPES [None]
  - MALNUTRITION [None]
  - PANCYTOPENIA [None]
  - NORMOCHROMIC NORMOCYTIC ANAEMIA [None]
  - ACUTE RESPIRATORY FAILURE [None]
  - BRADYCARDIA [None]
  - ACQUIRED IMMUNODEFICIENCY SYNDROME [None]
  - PSEUDOMONAL BACTERAEMIA [None]
  - SKIN DISORDER [None]
  - SYSTEMIC INFLAMMATORY RESPONSE SYNDROME [None]
  - TOXIC EPIDERMAL NECROLYSIS [None]
  - ASTHMA [None]
  - ISCHAEMIC HEPATITIS [None]
  - ENTEROCOCCAL BACTERAEMIA [None]
  - HIV ASSOCIATED NEPHROPATHY [None]
  - INTESTINAL ISCHAEMIA [None]
  - CARDIAC ARREST [None]
  - CARDIOVASCULAR DISORDER [None]
  - WOUND INFECTION PSEUDOMONAS [None]
